FAERS Safety Report 9508577 (Version 1)
Quarter: 2013Q1

REPORT INFORMATION
  Report Type: Spontaneous
  Country: US (occurrence: None)
  Receive Date: 20130305
  Receipt Date: 20130305
  Transmission Date: 20140127
  Serious: No
  Sender: FDA-Public Use
  Company Number: 163-21880-11091798

PATIENT
  Age: 65 Year
  Sex: Male

DRUGS (2)
  1. REVLIMID (LENALIDOMIDE) (CAPSULES) [Suspect]
     Indication: PLASMA CELL MYELOMA
     Dosage: 25MG, 1 IN 1 D, PO
     Dates: start: 200908
  2. VELCADE (BORTEZOMIB) (INJECTION) [Concomitant]

REACTIONS (8)
  - Pneumonia [None]
  - Fatigue [None]
  - Muscle spasms [None]
  - Rash [None]
  - Dyspnoea [None]
  - Productive cough [None]
  - Asthenia [None]
  - White blood cell count decreased [None]
